FAERS Safety Report 12066821 (Version 1)
Quarter: 2016Q1

REPORT INFORMATION
  Report Type: Spontaneous
  Country: US (occurrence: None)
  Receive Date: 20160210
  Receipt Date: 20160210
  Transmission Date: 20160526
  Serious: Yes (Life-Threatening)
  Sender: FDA-Public Use
  Company Number: None

PATIENT
  Age: 64 Year
  Sex: Female
  Weight: 70.2 kg

DRUGS (4)
  1. METHYLPREDNISOLONE. [Suspect]
     Active Substance: METHYLPREDNISOLONE
     Indication: TERMINAL STATE
     Route: 042
     Dates: start: 20160105, end: 20160111
  2. HEPARIN [Suspect]
     Active Substance: HEPARIN SODIUM
     Indication: PULMONARY EMBOLISM
     Route: 042
     Dates: start: 20160107, end: 20160109
  3. METHYLPREDNISOLONE. [Suspect]
     Active Substance: METHYLPREDNISOLONE
     Indication: INTERSTITIAL LUNG DISEASE
     Route: 042
     Dates: start: 20160105, end: 20160111
  4. METHYLPREDNISOLONE. [Suspect]
     Active Substance: METHYLPREDNISOLONE
     Indication: ACUTE RESPIRATORY DISTRESS SYNDROME
     Route: 042
     Dates: start: 20160105, end: 20160111

REACTIONS (7)
  - Gastric haemorrhage [None]
  - Haematemesis [None]
  - Haematocrit decreased [None]
  - Pulmonary embolism [None]
  - Renal function test abnormal [None]
  - Blood thromboplastin increased [None]
  - Haemoglobin decreased [None]

NARRATIVE: CASE EVENT DATE: 20160109
